FAERS Safety Report 4383399-4 (Version None)
Quarter: 2004Q2

REPORT INFORMATION
  Report Type: 
  Country: None (occurrence: None)
  Receive Date: 20040618
  Receipt Date: 20040611
  Transmission Date: 20050107
  Serious: Yes (Death, Hospitalization)
  Sender: FDA-Public Use
  Company Number: STA-AE-04-MTX-261

PATIENT
  Age: 61 Year
  Sex: Male

DRUGS (7)
  1. RHEUMATREX [Suspect]
     Indication: RHEUMATOID ARTHRITIS
     Dosage: 4 MG 1 X PER 1 WK, ORAL
     Route: 048
     Dates: start: 19991023, end: 20020510
  2. RHEUMATREX [Suspect]
     Indication: RHEUMATOID ARTHRITIS
     Dosage: 6 MG 1 X PER 1 WK, ORAL
     Route: 048
     Dates: start: 20020511, end: 20021101
  3. RHEUMATREX [Suspect]
     Indication: RHEUMATOID ARTHRITIS
     Dosage: 8 MG 1 X PER 1 WK, ORAL
     Route: 048
     Dates: start: 20021102, end: 20040428
  4. PREDNISOLONE [Concomitant]
  5. SELBEX (TEPRENONE) [Concomitant]
  6. TAGAMET [Concomitant]
  7. ACECOL (TEMOCAPRIL HYDROCHLORIDE) [Concomitant]

REACTIONS (27)
  - ABDOMINAL MASS [None]
  - ABDOMINAL PAIN [None]
  - ACIDOSIS [None]
  - ANOREXIA [None]
  - ATRIAL FIBRILLATION [None]
  - BLOOD PRESSURE DECREASED [None]
  - CARDIAC ARREST [None]
  - CATHETER SITE INFECTION [None]
  - CULTURE URINE POSITIVE [None]
  - DISSEMINATED INTRAVASCULAR COAGULATION [None]
  - ENTEROCOCCAL INFECTION [None]
  - HAEMATOCHEZIA [None]
  - HAEMATURIA [None]
  - HAEMODIALYSIS [None]
  - HEPATIC FUNCTION ABNORMAL [None]
  - LOSS OF CONSCIOUSNESS [None]
  - MALAISE [None]
  - MOUTH HAEMORRHAGE [None]
  - OXYGEN SATURATION DECREASED [None]
  - PANCYTOPENIA [None]
  - PERITONITIS [None]
  - RENAL FAILURE ACUTE [None]
  - RESPIRATORY ARREST [None]
  - SEPTIC SHOCK [None]
  - STOMATITIS [None]
  - URINARY BLADDER SARCOMA [None]
  - VOMITING [None]
